FAERS Safety Report 4698349-0 (Version None)
Quarter: 2005Q2

REPORT INFORMATION
  Report Type: 
  Country: None (occurrence: None)
  Receive Date: 20050621
  Receipt Date: 20050608
  Transmission Date: 20051028
  Serious: Yes (Hospitalization)
  Sender: FDA-Public Use
  Company Number: 2005086784

PATIENT
  Sex: Male

DRUGS (1)
  1. UNASYN [Suspect]
     Indication: ILL-DEFINED DISORDER
     Dosage: 3 GRAM INTRAVENOUS
     Route: 042

REACTIONS (4)
  - ADVERSE EVENT [None]
  - ANGIONEUROTIC OEDEMA [None]
  - HYPERSENSITIVITY [None]
  - PROCEDURAL COMPLICATION [None]
